FAERS Safety Report 16445934 (Version 2)
Quarter: 2019Q2

REPORT INFORMATION
  Report Type: Report from Study
  Country: CN (occurrence: CN)
  Receive Date: 20190618
  Receipt Date: 20190627
  Transmission Date: 20190711
  Serious: Yes (Hospitalization)
  Sender: FDA-Public Use
  Company Number: CN-PFIZER INC-2019242567

PATIENT
  Age: 73 Year
  Sex: Male
  Weight: 74.5 kg

DRUGS (13)
  1. CARBAZOCHROME SODIUM SULFONATE [Concomitant]
     Active Substance: CARBAZOCHROME SODIUM SULFONATE
  2. CALCIUM DOBESILATE [Concomitant]
     Active Substance: CALCIUM DOBESILATE
  3. PANTOPRAZOLE SODIUM. [Concomitant]
     Active Substance: PANTOPRAZOLE SODIUM
  4. LENTINAN [Concomitant]
     Active Substance: LENTINAN
  5. MEGLUMINE ADENOSINE CYCLOPHOSPHATE [Concomitant]
     Active Substance: ADENOSINE CYCLIC PHOSPHATE MEGLUMINE
  6. CEFTRIAXONE SODIUM. [Concomitant]
     Active Substance: CEFTRIAXONE SODIUM
  7. AMLODIPINE BESYLATE. [Concomitant]
     Active Substance: AMLODIPINE BESYLATE
  8. NIFEREX [POLYSACCHARIDE-IRON COMPLEX] [Concomitant]
  9. FORTRANS [MACROGOL 4000] [Concomitant]
     Dosage: ELECTROLYTE POWDER
  10. POTASSIUM CHLORIDE. [Concomitant]
     Active Substance: POTASSIUM CHLORIDE
  11. LORLATINIB [Suspect]
     Active Substance: LORLATINIB
     Indication: NON-SMALL CELL LUNG CANCER
     Dosage: 100 MG, 1X/DAY
     Route: 048
  12. LEVOCARNITINE. [Concomitant]
     Active Substance: LEVOCARNITINE
  13. DOXOFYLLINE [Concomitant]
     Active Substance: DOXOFYLLINE

REACTIONS (2)
  - Gastrointestinal haemorrhage [Not Recovered/Not Resolved]
  - Lung infection [Unknown]

NARRATIVE: CASE EVENT DATE: 20190516
